FAERS Safety Report 9516000 (Version 1)
Quarter: 2013Q3

REPORT INFORMATION
  Report Type: Spontaneous
  Country: FR (occurrence: FR)
  Receive Date: 20130911
  Receipt Date: 20130911
  Transmission Date: 20140515
  Serious: Yes (Hospitalization)
  Sender: FDA-Public Use
  Company Number: FR-SANOFI-AVENTIS-2013SA089912

PATIENT
  Age: 82 Year
  Sex: Female

DRUGS (5)
  1. FUROSEMIDE [Suspect]
     Indication: PRODUCT USED FOR UNKNOWN INDICATION
     Route: 048
     Dates: end: 20130809
  2. CARDENSIEL [Concomitant]
  3. COVERSYL [Concomitant]
  4. XARELTO [Concomitant]
  5. DEPAKINE CHRONO [Concomitant]

REACTIONS (2)
  - Convulsion [Recovered/Resolved]
  - Hyponatraemia [Recovered/Resolved]
